FAERS Safety Report 21286693 (Version 3)
Quarter: 2022Q4

REPORT INFORMATION
  Report Type: Report from Study
  Country: JP (occurrence: None)
  Receive Date: 20220902
  Receipt Date: 20221130
  Transmission Date: 20230113
  Serious: Yes (Death, Life-Threatening, Hospitalization)
  Sender: FDA-Public Use
  Company Number: JP-Merck Healthcare KGaA-9347313

PATIENT
  Age: 46 Year
  Sex: Male
  Weight: 63 kg

DRUGS (4)
  1. BAVENCIO [Suspect]
     Active Substance: AVELUMAB
     Indication: Metastatic renal cell carcinoma
     Dosage: DOSING RATE: 281.5 ML/HR.
     Route: 041
     Dates: start: 20200910, end: 20201029
  2. INLYTA [Suspect]
     Active Substance: AXITINIB
     Indication: Metastatic renal cell carcinoma
     Route: 048
     Dates: start: 20200910, end: 20201112
  3. ACETAMINOPHEN [Concomitant]
     Active Substance: ACETAMINOPHEN
     Indication: Premedication
     Dosage: DOSING RATE: 281.5 ML/HR.
     Route: 048
     Dates: start: 20200910, end: 20201029
  4. DIPHENHYDRAMINE [Concomitant]
     Active Substance: DIPHENHYDRAMINE
     Indication: Premedication
     Dosage: DOSING RATE: 281.5 ML/HR.
     Route: 048
     Dates: start: 20200910, end: 20200924

REACTIONS (2)
  - Interstitial lung disease [Not Recovered/Not Resolved]
  - Disease progression [Fatal]

NARRATIVE: CASE EVENT DATE: 20201112
